FAERS Safety Report 21531474 (Version 1)
Quarter: 2022Q4

REPORT INFORMATION
  Report Type: Report from Study
  Country: US (occurrence: US)
  Receive Date: 20221031
  Receipt Date: 20221031
  Transmission Date: 20230112
  Serious: No
  Sender: FDA-Public Use
  Company Number: US-INCYTE CORPORATION-2022IN009331

PATIENT

DRUGS (1)
  1. JAKAFI [Suspect]
     Active Substance: RUXOLITINIB
     Indication: Thrombocytosis
     Dosage: 10 MILLIGRAM, TID (TAKING TWO TABLETS OF 10MG JAKAFI  IN THE MORNING AND ONE 10MG TABLET IN THE EVEN
     Route: 065

REACTIONS (1)
  - Off label use [Unknown]
